FAERS Safety Report 9377041 (Version 3)
Quarter: 2013Q3

REPORT INFORMATION
  Report Type: Spontaneous
  Country: PL (occurrence: PL)
  Receive Date: 20130701
  Receipt Date: 20130917
  Transmission Date: 20140515
  Serious: Yes (Other)
  Sender: FDA-Public Use
  Company Number: PL-PFIZER INC-2013191148

PATIENT
  Age: 56 Year
  Sex: Male
  Weight: 90 kg

DRUGS (3)
  1. LYRICA [Suspect]
     Indication: NEURALGIA
     Dosage: 75 MG, 2X/DAY
     Route: 048
     Dates: start: 20130606, end: 20130627
  2. VIVACOR (CARVEDILOL) [Concomitant]
     Indication: HYPERTENSION
  3. PRESTARIUM [Concomitant]
     Indication: HYPERTENSION

REACTIONS (5)
  - Dyspnoea [Recovered/Resolved]
  - Cardiovascular insufficiency [Recovered/Resolved]
  - Pleural effusion [Recovered/Resolved]
  - Cough [Recovered/Resolved]
  - Asthenia [Recovered/Resolved]
